FAERS Safety Report 7277094-1 (Version None)
Quarter: 2011Q1

REPORT INFORMATION
  Report Type: 
  Country: None (occurrence: None)
  Receive Date: 20110202
  Receipt Date: 20110202
  Transmission Date: 20110831
  Serious: Yes (Other)
  Sender: FDA-Public Use
  Company Number: None

PATIENT
  Sex: Male
  Weight: 89.8122 kg

DRUGS (2)
  1. ASPERCREAME TROLAMINE SALICYLATE 10% [Suspect]
     Indication: PAIN
     Dosage: LIGHT COAT EVERY THREE DAY
     Dates: start: 20101227
  2. ASPERCREAME TROLAMINE SALICYLATE 10% [Suspect]
     Indication: PAIN
     Dosage: LIGHT COAT EVERY THREE DAY
     Dates: start: 20101223

REACTIONS (1)
  - BURNS SECOND DEGREE [None]
